FAERS Safety Report 6851036-2 (Version None)
Quarter: 2010Q3

REPORT INFORMATION
  Report Type: 
  Country: None (occurrence: None)
  Receive Date: 20100716
  Receipt Date: 20071025
  Transmission Date: 20110219
  Serious: No
  Sender: FDA-Public Use
  Company Number: US-PFIZER INC-2007090762

PATIENT
  Sex: Female
  Weight: 77.1 kg

DRUGS (4)
  1. CHANTIX [Suspect]
     Indication: SMOKING CESSATION THERAPY
     Dates: start: 20071001
  2. LEXAPRO [Concomitant]
  3. NEFAZODONE HCL [Concomitant]
  4. LORAZEPAM [Concomitant]

REACTIONS (2)
  - FATIGUE [None]
  - SLUGGISHNESS [None]
